FAERS Safety Report 6601543-2 (Version None)
Quarter: 2010Q1

REPORT INFORMATION
  Report Type: 
  Country: None (occurrence: None)
  Receive Date: 20100217
  Receipt Date: 20100129
  Transmission Date: 20100710
  Serious: Yes (Other)
  Sender: FDA-Public Use
  Company Number: B0631436A

PATIENT
  Age: 25 Year
  Sex: Male

DRUGS (1)
  1. PROPRANOLOL HCL [Suspect]
     Indication: TACHYCARDIA
     Dosage: 20 MG / THREE TIMES PER DAY

REACTIONS (11)
  - ACINETOBACTER INFECTION [None]
  - BEDRIDDEN [None]
  - COLONIC PSEUDO-OBSTRUCTION [None]
  - FAILURE TO THRIVE [None]
  - HYPERMETABOLISM [None]
  - OLIGURIA [None]
  - PSEUDOMONAL SEPSIS [None]
  - SKIN GRAFT [None]
  - SURGICAL PROCEDURE REPEATED [None]
  - TACHYCARDIA [None]
  - WEIGHT DECREASED [None]
